FAERS Safety Report 9263184 (Version 1)
Quarter: 2013Q2

REPORT INFORMATION
  Report Type: Spontaneous
  Country: US (occurrence: US)
  Receive Date: 20130430
  Receipt Date: 20130430
  Transmission Date: 20140414
  Serious: Yes (Other)
  Sender: FDA-Public Use
  Company Number: US-ASTRAZENECA-2013SE27857

PATIENT
  Age: 65 Year
  Sex: Female

DRUGS (1)
  1. BRILINTA [Suspect]
     Indication: ANTIPLATELET THERAPY
     Dosage: 180 MG, UNKNOWN, LOADING DOSE
     Route: 048
     Dates: start: 201304, end: 201304

REACTIONS (2)
  - Ventricular extrasystoles [Recovered/Resolved]
  - Atrial fibrillation [Recovered/Resolved]
